FAERS Safety Report 7119971-8 (Version None)
Quarter: 2010Q4

REPORT INFORMATION
  Report Type: 
  Country: None (occurrence: None)
  Receive Date: 20101123
  Receipt Date: 20101122
  Transmission Date: 20110411
  Serious: Yes (Other)
  Sender: FDA-Public Use
  Company Number: US-CEPHALON-2010005247

PATIENT
  Sex: Female
  Weight: 94 kg

DRUGS (6)
  1. NUVIGIL [Suspect]
     Indication: POOR QUALITY SLEEP
     Route: 048
     Dates: start: 20100501
  2. WELLBUTRIN XL [Concomitant]
     Dates: start: 20030101
  3. PRISTIQ [Concomitant]
     Indication: VITAMIN SUPPLEMENTATION
     Dates: start: 20080101
  4. OB COMPLETE [Concomitant]
     Dates: start: 20100927
  5. PSYLLIUM [Concomitant]
  6. TYLENOL ES [Concomitant]

REACTIONS (3)
  - ABORTION MISSED [None]
  - DRUG EXPOSURE DURING PREGNANCY [None]
  - HEADACHE [None]
